FAERS Safety Report 6983817-9 (Version None)
Quarter: 2010Q3

REPORT INFORMATION
  Report Type: 
  Country: None (occurrence: None)
  Receive Date: 20100914
  Receipt Date: 20090122
  Transmission Date: 20110219
  Serious: Yes (Hospitalization)
  Sender: FDA-Public Use
  Company Number: US-WYE-H07796809

PATIENT
  Sex: Female
  Weight: 40 kg

DRUGS (14)
  1. TYGACIL [Suspect]
     Indication: PYREXIA
     Route: 042
     Dates: start: 20090101, end: 20090107
  2. LOPRESSOR [Concomitant]
     Route: 048
  3. ZOCOR [Concomitant]
     Route: 048
  4. ASPIRIN [Concomitant]
     Route: 048
  5. VASOTEC [Concomitant]
     Route: 048
  6. SEVELAMER [Concomitant]
     Route: 048
  7. BENADRYL [Concomitant]
     Route: 048
  8. CATAPRES [Concomitant]
     Route: 048
  9. COMBIVENT [Concomitant]
     Route: 048
  10. PHOSLO [Concomitant]
     Route: 048
  11. NEXIUM [Concomitant]
     Route: 048
  12. COUMADIN [Concomitant]
     Route: 048
  13. IMDUR [Concomitant]
     Route: 048
  14. CARDIZEM [Concomitant]
     Route: 048

REACTIONS (1)
  - PANCREATITIS [None]
